FAERS Safety Report 22282291 (Version 4)
Quarter: 2025Q2

REPORT INFORMATION
  Report Type: Spontaneous
  Country: US (occurrence: US)
  Receive Date: 20230504
  Receipt Date: 20250513
  Transmission Date: 20250717
  Serious: No
  Sender: SANOFI AVENTIS
  Company Number: US-SA-SAC20230501001825

PATIENT
  Age: 34 Year
  Sex: Female

DRUGS (34)
  1. DUPIXENT [Suspect]
     Active Substance: DUPILUMAB
     Indication: Dermatitis atopic
     Dosage: 300 MG, QOW
     Route: 058
     Dates: start: 20220908
  2. CARVEDILOL [Concomitant]
     Active Substance: CARVEDILOL
  3. CLOBETASOL PROPIONATE [Concomitant]
     Active Substance: CLOBETASOL PROPIONATE
  4. FISH OIL [Concomitant]
     Active Substance: FISH OIL
  5. FOLIC ACID [Concomitant]
     Active Substance: FOLIC ACID
  6. GONAL-F [Concomitant]
     Active Substance: FOLLITROPIN
  7. GONAL-F [Concomitant]
     Active Substance: FOLLITROPIN
  8. INOSITOL [Concomitant]
     Active Substance: INOSITOL
  9. LISINOPRIL [Concomitant]
     Active Substance: LISINOPRIL
  10. LISINOPRIL [Concomitant]
     Active Substance: LISINOPRIL
  11. OVIDREL [Concomitant]
     Active Substance: CHORIOGONADOTROPIN ALFA
  12. PROZAC [Concomitant]
     Active Substance: FLUOXETINE HYDROCHLORIDE
  13. VITAMIN D NOS [Concomitant]
     Active Substance: CHOLECALCIFEROL\ERGOCALCIFEROL
  14. CHILDRENS ZYRTEC [Concomitant]
     Active Substance: CETIRIZINE HYDROCHLORIDE
  15. TRIAMCINOLONE [Concomitant]
     Active Substance: TRIAMCINOLONE
  16. COENZYME Q10 [Concomitant]
     Active Substance: DIETARY SUPPLEMENT\UBIDECARENONE
  17. PRENATAL [ASCORBIC ACID;BETACAROTENE;BIOTIN;CALCIUM CARBONATE;CALCIUM [Concomitant]
  18. CETROTIDE [Concomitant]
     Active Substance: CETRORELIX ACETATE
  19. LEUPROLIDE ACETATE [Concomitant]
     Active Substance: LEUPROLIDE ACETATE
  20. MENOPUR [Concomitant]
     Active Substance: FOLLITROPIN\LUTEINIZING HORMONE
  21. PREGNYL [Concomitant]
     Active Substance: CHORIOGONADOTROPIN ALFA
  22. PROGESTERONE [Concomitant]
     Active Substance: PROGESTERONE
  23. GONADOTROPHIN, CHORIONIC [Concomitant]
     Active Substance: GONADOTROPHIN, CHORIONIC
  24. FOLIC ACID\IRON\MINERALS\VITAMINS [Concomitant]
     Active Substance: FOLIC ACID\IRON\MINERALS\VITAMINS
  25. ESTRADIOL [Concomitant]
     Active Substance: ESTRADIOL
  26. DEXAMETHASONE [Concomitant]
     Active Substance: DEXAMETHASONE
  27. LETROZOLE [Concomitant]
     Active Substance: LETROZOLE
  28. FLUOXETINE [Concomitant]
     Active Substance: FLUOXETINE HYDROCHLORIDE
  29. FLUOXETINE [Concomitant]
     Active Substance: FLUOXETINE HYDROCHLORIDE
  30. AMOXICILLIN [Concomitant]
     Active Substance: AMOXICILLIN
  31. FOLLISTIM AQ [Concomitant]
     Active Substance: FOLLITROPIN
  32. FOLLISTIM AQ [Concomitant]
     Active Substance: FOLLITROPIN
  33. GANIRELIX [Concomitant]
     Active Substance: GANIRELIX
  34. GANIRELIX ACETATE [Concomitant]
     Active Substance: GANIRELIX ACETATE

REACTIONS (7)
  - Dermatitis atopic [Unknown]
  - Dry skin [Unknown]
  - Discomfort [Unknown]
  - Rash [Unknown]
  - Pruritus [Unknown]
  - Sleep disorder due to general medical condition, insomnia type [Unknown]
  - Drug ineffective [Unknown]

NARRATIVE: CASE EVENT DATE: 20230101
